FAERS Safety Report 6608243-3 (Version None)
Quarter: 2010Q1

REPORT INFORMATION
  Report Type: 
  Country: None (occurrence: None)
  Receive Date: 20100301
  Receipt Date: 20100217
  Transmission Date: 20100710
  Serious: Yes (Hospitalization)
  Sender: FDA-Public Use
  Company Number: GB-ROCHE-685820

PATIENT
  Sex: Female
  Weight: 46.5 kg

DRUGS (2)
  1. MYCOPHENOLATE MOFETIL [Suspect]
     Indication: VASCULITIS
     Route: 065
     Dates: start: 20100128
  2. MYCOPHENOLATE MOFETIL [Suspect]
     Route: 065
     Dates: start: 20100204

REACTIONS (1)
  - DISEASE PROGRESSION [None]
